FAERS Safety Report 20850898 (Version 1)
Quarter: 2022Q2

REPORT INFORMATION
  Report Type: Spontaneous
  Country: US (occurrence: US)
  Receive Date: 20220519
  Receipt Date: 20220519
  Transmission Date: 20220721
  Serious: No
  Sender: FDA-Public Use
  Company Number: US-PFIZER INC-202200309353

PATIENT
  Age: 57 Year
  Sex: Female
  Weight: 70.31 kg

DRUGS (6)
  1. COLESTIPOL HYDROCHLORIDE [Suspect]
     Active Substance: COLESTIPOL HYDROCHLORIDE
     Indication: Cholecystectomy
     Dosage: 1 GM TABLET, TAKE ONE TO TWO TABLET BY MOUTH EVERYDAY AS NEEDED
     Route: 048
  2. COLESTIPOL HYDROCHLORIDE [Suspect]
     Active Substance: COLESTIPOL HYDROCHLORIDE
     Indication: Diarrhoea
  3. POTASSIUM [Concomitant]
     Active Substance: POTASSIUM
     Dosage: UNK
  4. DICYCLOMINE [Concomitant]
     Active Substance: DICYCLOMINE HYDROCHLORIDE
     Dosage: 20 MG
  5. DEB [Concomitant]
     Dosage: UNK
  6. LOPERAMIDE [Concomitant]
     Active Substance: LOPERAMIDE
     Dosage: UNK

REACTIONS (4)
  - Poor quality product administered [Unknown]
  - Product physical issue [Unknown]
  - Off label use [Unknown]
  - Tremor [Unknown]

NARRATIVE: CASE EVENT DATE: 20211201
